FAERS Safety Report 7203575-2 (Version None)
Quarter: 2010Q4

REPORT INFORMATION
  Report Type: 
  Country: None (occurrence: None)
  Receive Date: 20101228
  Receipt Date: 20101228
  Transmission Date: 20110411
  Serious: Yes (Hospitalization, Other)
  Sender: FDA-Public Use
  Company Number: None

PATIENT
  Age: 58 Year
  Sex: Female
  Weight: 67.1 kg

DRUGS (1)
  1. LEFLUNOMIDE [Suspect]
     Indication: PSORIATIC ARTHROPATHY
     Dosage: 10 MG DAILY PO
     Route: 048

REACTIONS (4)
  - HEADACHE [None]
  - MYALGIA [None]
  - OROPHARYNGEAL PAIN [None]
  - VIRAL INFECTION [None]
